FAERS Safety Report 8901439 (Version 3)
Quarter: 2013Q1

REPORT INFORMATION
  Report Type: Report from Study
  Country: US (occurrence: US)
  Receive Date: 20121109
  Receipt Date: 20130228
  Transmission Date: 20140127
  Serious: Yes (Other)
  Sender: FDA-Public Use
  Company Number: US-JNJFOC-20121100568

PATIENT
  Sex: Female

DRUGS (6)
  1. REMICADE [Suspect]
     Indication: SARCOIDOSIS
     Route: 042
     Dates: start: 2011, end: 20121023
  2. HYDROXYCHLOROQUINE [Concomitant]
     Route: 065
  3. COLCRYS [Concomitant]
     Route: 065
  4. FOLIC ACID [Concomitant]
     Route: 065
  5. DICLOFENAC SODIUM [Concomitant]
     Route: 065
  6. METHOTREXATE [Concomitant]
     Route: 065

REACTIONS (2)
  - Osteogenesis imperfecta [Not Recovered/Not Resolved]
  - Arthralgia [Not Recovered/Not Resolved]
